FAERS Safety Report 7289330-6 (Version None)
Quarter: 2011Q1

REPORT INFORMATION
  Report Type: 
  Country: None (occurrence: None)
  Receive Date: 20110211
  Receipt Date: 20110208
  Transmission Date: 20110831
  Serious: Yes (Other)
  Sender: FDA-Public Use
  Company Number: FR-PFIZER INC-2011028918

PATIENT
  Age: 58 Year
  Sex: Female

DRUGS (4)
  1. MEDIATOR [Suspect]
     Indication: TYPE 2 DIABETES MELLITUS
     Dosage: 1 DF, 3X/DAY
     Route: 048
     Dates: start: 19951222, end: 20090615
  2. AMLOR [Suspect]
     Indication: HYPERTENSION
     Dosage: 1 DF, 1X/DAY
     Route: 048
     Dates: start: 19951222
  3. LOPRESSOR [Suspect]
     Indication: HYPERTENSION
     Dosage: 1 DF, 1X/DAY
     Route: 048
     Dates: start: 19951222
  4. DIAMICRON [Suspect]
     Indication: TYPE 2 DIABETES MELLITUS
     Dosage: 1 DF, 3X/DAY
     Route: 048
     Dates: start: 19951222, end: 20090615

REACTIONS (6)
  - GAIT DISTURBANCE [None]
  - VERTIGO [None]
  - FALL [None]
  - DYSPNOEA [None]
  - MOBILITY DECREASED [None]
  - ASTHENIA [None]
